FAERS Safety Report 12801104 (Version 1)
Quarter: 2016Q4

REPORT INFORMATION
  Report Type: Report from Study
  Country: US (occurrence: US)
  Receive Date: 20161003
  Receipt Date: 20161003
  Transmission Date: 20170207
  Serious: Yes (Other)
  Sender: FDA-Public Use
  Company Number: US-AMGEN-USASL2016133783

PATIENT

DRUGS (1)
  1. KYPROLIS [Suspect]
     Active Substance: CARFILZOMIB
     Indication: PRODUCT USED FOR UNKNOWN INDICATION
     Dosage: UNK
     Route: 065

REACTIONS (16)
  - Type 2 diabetes mellitus [Unknown]
  - Polyneuropathy [Unknown]
  - Bone disorder [Unknown]
  - Dyspnoea [Unknown]
  - Bone density abnormal [Unknown]
  - Fungal infection [Unknown]
  - Musculoskeletal pain [Unknown]
  - Osteoarthritis [Unknown]
  - Hyperglycaemia [Unknown]
  - Arthralgia [Unknown]
  - Investigation [Unknown]
  - Hyperlipidaemia [Unknown]
  - Vitamin D deficiency [Unknown]
  - Nausea [Unknown]
  - Vomiting [Unknown]
  - Essential hypertension [Unknown]

NARRATIVE: CASE EVENT DATE: 20150317
